FAERS Safety Report 5138572-4 (Version None)
Quarter: 2006Q4

REPORT INFORMATION
  Report Type: 
  Country: None (occurrence: None)
  Receive Date: 20061030
  Receipt Date: 20060308
  Transmission Date: 20070319
  Serious: No
  Sender: FDA-Public Use
  Company Number: US-GLAXOSMITHKLINE-A0597770A

PATIENT
  Sex: Female

DRUGS (1)
  1. ADVAIR HFA [Suspect]

REACTIONS (6)
  - COUGH [None]
  - HEADACHE [None]
  - HYPERSENSITIVITY [None]
  - INSOMNIA [None]
  - PHARYNGOLARYNGEAL PAIN [None]
  - TREMOR [None]
